FAERS Safety Report 6047070-5 (Version None)
Quarter: 2009Q1

REPORT INFORMATION
  Report Type: 
  Country: None (occurrence: None)
  Receive Date: 20090122
  Receipt Date: 20090115
  Transmission Date: 20090719
  Serious: Yes (Hospitalization)
  Sender: FDA-Public Use
  Company Number: FR-JNJFOC-20081003792

PATIENT
  Sex: Female

DRUGS (2)
  1. TOPIRAMATE [Suspect]
     Indication: MIGRAINE
     Route: 048
  2. RELPAX [Suspect]
     Indication: MIGRAINE

REACTIONS (1)
  - INTRACRANIAL VENOUS SINUS THROMBOSIS [None]
